FAERS Safety Report 15371203 (Version 1)
Quarter: 2018Q3

REPORT INFORMATION
  Report Type: Spontaneous
  Country: FR (occurrence: FR)
  Receive Date: 20180911
  Receipt Date: 20180911
  Transmission Date: 20181010
  Serious: Yes (Hospitalization)
  Sender: FDA-Public Use
  Company Number: FR-SA-2018SA245956

PATIENT
  Age: 48 Year
  Sex: Male

DRUGS (5)
  1. ALCOHOL. [Suspect]
     Active Substance: ALCOHOL
     Indication: INTENTIONAL OVERDOSE
     Dosage: UNK UNK, UNK
     Route: 048
     Dates: start: 20180430, end: 20180430
  2. DIAZEPAM. [Suspect]
     Active Substance: DIAZEPAM
     Indication: INTENTIONAL OVERDOSE
     Dosage: UNK UNK, UNK
     Route: 048
     Dates: start: 20180430, end: 20180430
  3. ZOLPIDEM TARTRATE. [Suspect]
     Active Substance: ZOLPIDEM TARTRATE
     Indication: INTENTIONAL OVERDOSE
     Dosage: UNK UNK, UNK
     Route: 048
     Dates: start: 20180430, end: 20180430
  4. PROTHIADEN [Suspect]
     Active Substance: DOTHIEPIN HYDROCHLORIDE
     Indication: INTENTIONAL OVERDOSE
     Dosage: UNK UNK, UNK
     Route: 048
     Dates: start: 20180430, end: 20180430
  5. LARGACTIL [Suspect]
     Active Substance: CHLORPROMAZINE
     Indication: INTENTIONAL OVERDOSE
     Dosage: UNK UNK, UNK
     Route: 048
     Dates: start: 20180430, end: 20180430

REACTIONS (5)
  - Pneumonia aspiration [Recovered/Resolved]
  - Poisoning deliberate [Recovered/Resolved]
  - Tachycardia [Recovered/Resolved]
  - Somnolence [Recovered/Resolved]
  - Pulmonary embolism [Recovered/Resolved]

NARRATIVE: CASE EVENT DATE: 20180430
